FAERS Safety Report 9853912 (Version 2)
Quarter: 2014Q1

REPORT INFORMATION
  Report Type: Report from Study
  Country: VE (occurrence: VE)
  Receive Date: 20140129
  Receipt Date: 20140129
  Transmission Date: 20141002
  Serious: Yes (Hospitalization)
  Sender: FDA-Public Use
  Company Number: VE-ABBVIE-13P-178-1099914-00

PATIENT
  Age: 29 Year
  Sex: Male
  Weight: 68 kg

DRUGS (2)
  1. HUMIRA [Suspect]
     Indication: RHEUMATOID ARTHRITIS
     Route: 058
     Dates: start: 20120207, end: 201304
  2. CALCOR [Concomitant]
     Indication: CROHN^S DISEASE
     Route: 048
     Dates: start: 201304

REACTIONS (2)
  - Transaminases increased [Recovering/Resolving]
  - Myalgia [Recovering/Resolving]
